FAERS Safety Report 14038513 (Version 1)
Quarter: 2017Q4

REPORT INFORMATION
  Report Type: Report from Study
  Country: US (occurrence: US)
  Receive Date: 20171004
  Receipt Date: 20171004
  Transmission Date: 20180321
  Serious: Yes (Hospitalization)
  Sender: FDA-Public Use
  Company Number: US-JNJFOC-20170930544

PATIENT
  Sex: Male

DRUGS (1)
  1. STELARA [Suspect]
     Active Substance: USTEKINUMAB
     Indication: CROHN^S DISEASE
     Route: 042
     Dates: start: 20170724

REACTIONS (3)
  - Herpes zoster [Not Recovered/Not Resolved]
  - Gastroenteritis salmonella [Unknown]
  - Septic shock [Unknown]

NARRATIVE: CASE EVENT DATE: 201708
